FAERS Safety Report 4965073-6 (Version None)
Quarter: 2006Q1

REPORT INFORMATION
  Report Type: 
  Country: None (occurrence: None)
  Receive Date: 20060130
  Receipt Date: 20050907
  Transmission Date: 20060701
  Serious: No
  Sender: FDA-Public Use
  Company Number: COT_0195_2005

PATIENT
  Age: 72 Year
  Sex: Male
  Weight: 79.3795 kg

DRUGS (12)
  1. VENTAVIS [Suspect]
     Indication: PULMONARY HYPERTENSION
     Dosage: 5 MCG 6TO9X/DAY IH
     Route: 055
     Dates: start: 20050706
  2. VENTAVIS [Suspect]
     Indication: PULMONARY HYPERTENSION
     Dosage: 5 MCG 6TO9X/DAY IH
     Route: 055
     Dates: start: 20050706
  3. VENTAVIS [Suspect]
     Indication: PULMONARY HYPERTENSION
     Dosage: 5 MCG 6TO9X/DAY IH
     Route: 055
     Dates: start: 20050706
  4. VENTAVIS [Suspect]
     Indication: PULMONARY HYPERTENSION
     Dosage: 2.5 MCG ONCE IH
     Route: 055
     Dates: start: 20050706, end: 20050706
  5. LIPITOR [Concomitant]
  6. PROPRANOLOL [Concomitant]
  7. ALPRAZOLAM [Concomitant]
  8. ASPIRIN [Concomitant]
  9. MULTI-VITAMIN [Concomitant]
  10. VITAMIN E [Concomitant]
  11. OXYGEN [Concomitant]
  12. COMBIVENT [Concomitant]

REACTIONS (1)
  - PAIN IN EXTREMITY [None]
